FAERS Safety Report 18225446 (Version 1)
Quarter: 2020Q3

REPORT INFORMATION
  Report Type: Spontaneous
  Country: US (occurrence: US)
  Receive Date: 20200903
  Receipt Date: 20200903
  Transmission Date: 20201103
  Serious: No
  Sender: FDA-Public Use
  Company Number: US-SUN PHARMACEUTICAL INDUSTRIES LTD-2020R1-239307

PATIENT
  Age: 74 Year
  Sex: Male

DRUGS (1)
  1. XIMINO [Suspect]
     Active Substance: MINOCYCLINE HYDROCHLORIDE
     Indication: INFECTION
     Dosage: 45 MILLIGRAM, BID
     Dates: start: 20200227

REACTIONS (2)
  - Wrong schedule [Unknown]
  - Off label use [Unknown]

NARRATIVE: CASE EVENT DATE: 20200302
